FAERS Safety Report 6504198-0 (Version None)
Quarter: 2009Q4

REPORT INFORMATION
  Report Type: 
  Country: None (occurrence: None)
  Receive Date: 20091217
  Receipt Date: 20091204
  Transmission Date: 20100525
  Serious: Yes (Disabling, Other)
  Sender: FDA-Public Use
  Company Number: PHHY2009NZ53282

PATIENT
  Sex: Female
  Weight: 91 kg

DRUGS (4)
  1. CLOZARIL [Suspect]
     Indication: SCHIZOPHRENIA
     Dosage: 350 MG DAILY
     Dates: start: 20030101
  2. CLOZARIL [Suspect]
     Dosage: 25 MG DAILY
     Dates: start: 20070227
  3. CLOZARIL [Suspect]
     Dosage: 50 MG DAILY
     Dates: start: 20080101, end: 20090901
  4. FLUOXETINE [Concomitant]
     Indication: DEPRESSION
     Dosage: 20 MG DAILY
     Dates: start: 20041001

REACTIONS (6)
  - APATHY [None]
  - DEPRESSION [None]
  - HYPERSOMNIA [None]
  - SEDATION [None]
  - URINARY INCONTINENCE [None]
  - WEIGHT INCREASED [None]
